FAERS Safety Report 20051218 (Version 3)
Quarter: 2022Q1

REPORT INFORMATION
  Report Type: Report from Study
  Country: CA (occurrence: CA)
  Receive Date: 20211110
  Receipt Date: 20220308
  Transmission Date: 20220423
  Serious: Yes (Other)
  Sender: FDA-Public Use
  Company Number: CA-JNJFOC-20211110713

PATIENT
  Age: 64 Year
  Sex: Male
  Weight: 79 kg

DRUGS (2)
  1. REMICADE [Suspect]
     Active Substance: INFLIXIMAB
     Indication: Colitis ulcerative
     Route: 042
  2. EFUDEX [Suspect]
     Active Substance: FLUOROURACIL
     Indication: Precancerous skin lesion
     Route: 061

REACTIONS (5)
  - Prostate cancer metastatic [Unknown]
  - Precancerous skin lesion [Unknown]
  - Skin disorder [Unknown]
  - Erythema [Unknown]
  - Proctitis [Unknown]

NARRATIVE: CASE EVENT DATE: 20210901
